FAERS Safety Report 10614027 (Version 4)
Quarter: 2015Q2

REPORT INFORMATION
  Report Type: Report from Study
  Country: CN (occurrence: CN)
  Receive Date: 20141128
  Receipt Date: 20150522
  Transmission Date: 20150821
  Serious: Yes (Hospitalization)
  Sender: FDA-Public Use
  Company Number: CN-UCBSA-2014019123

PATIENT
  Age: 56 Year
  Sex: Male
  Weight: 58 kg

DRUGS (11)
  1. LACOSAMIDE EP [Suspect]
     Active Substance: LACOSAMIDE
     Dosage: 200 MG, 2X/DAY (BID)
     Route: 048
     Dates: start: 20140729
  2. CARBAMAZEPINE. [Concomitant]
     Active Substance: CARBAMAZEPINE
     Indication: EPILEPSY
     Dosage: 200 MG, 2X/DAY (BID)
     Route: 048
     Dates: start: 20141028, end: 20141031
  3. TEGRETOL [Concomitant]
     Active Substance: CARBAMAZEPINE
     Indication: EPILEPSY
     Dosage: 400 MG, 2X/DAY (BID)
     Route: 048
     Dates: start: 201212
  4. TRANEXAMIC ACID. [Concomitant]
     Active Substance: TRANEXAMIC ACID
     Indication: VOCAL CORD LEUKOPLAKIA
     Dosage: 1 G, ONCE DAILY (QD) COMBINATION WITH SODIUM CHLORIDE
     Route: 042
     Dates: start: 20141023, end: 20141025
  5. SODIUM VALPROATE [Concomitant]
     Active Substance: VALPROATE SODIUM
     Indication: EPILEPSY
     Dosage: 400 MG, 2X/DAY (BID)
     Route: 048
     Dates: start: 201212
  6. DEPAKIN [Concomitant]
     Active Substance: VALPROATE SODIUM
     Indication: EPILEPSY
     Dosage: 500 MG, 2X/DAY (BID)
     Route: 048
     Dates: start: 20141028, end: 20141031
  7. LACOSAMIDE EP [Suspect]
     Active Substance: LACOSAMIDE
     Indication: EPILEPSY
     Dosage: 100 MG, 2X/DAY (BID)
     Route: 048
     Dates: start: 20140603, end: 20140701
  8. BUDESONIDE. [Concomitant]
     Active Substance: BUDESONIDE
     Indication: VOCAL CORD LEUKOPLAKIA
     Dosage: 2 MG, 2X/DAY (BID)
     Dates: start: 20141022, end: 20141027
  9. SODIUM CHLORIDE. [Concomitant]
     Active Substance: SODIUM CHLORIDE
     Indication: VOCAL CORD LEUKOPLAKIA
     Dosage: 1 G, ONCE DAILY (QD) COMBINATION WITH TRANEXAMIC ACID
     Route: 042
     Dates: start: 20141023, end: 20141025
  10. LACOSAMIDE EP [Suspect]
     Active Substance: LACOSAMIDE
     Dosage: 150 MG, 2X/DAY (BID)
     Route: 048
     Dates: start: 20140701, end: 20140729
  11. CEFAZOLIN SODIUM. [Concomitant]
     Active Substance: CEFAZOLIN SODIUM
     Indication: VOCAL CORD LEUKOPLAKIA
     Dosage: 2 G, 2X/DAY (BID)
     Route: 042
     Dates: start: 20141022, end: 20141027

REACTIONS (2)
  - Vocal cord leukoplakia [Recovered/Resolved]
  - Mental disorder [Recovered/Resolved]

NARRATIVE: CASE EVENT DATE: 20141021
